FAERS Safety Report 7824390-2 (Version None)
Quarter: 2011Q4

REPORT INFORMATION
  Report Type: 
  Country: None (occurrence: None)
  Receive Date: 20111019
  Receipt Date: 20111011
  Transmission Date: 20120403
  Serious: Yes (Death)
  Sender: FDA-Public Use
  Company Number: CA-BAXTER-2011BH032371

PATIENT
  Age: 43 Year
  Sex: Female

DRUGS (3)
  1. FLUOROURACIL [Suspect]
     Indication: NEOPLASM MALIGNANT
     Route: 042
  2. 5% DEXTROSE INJECTION [Suspect]
     Indication: NEOPLASM MALIGNANT
     Route: 042
  3. CISPLATIN [Suspect]
     Indication: NEOPLASM MALIGNANT
     Route: 042

REACTIONS (2)
  - DRUG DISPENSING ERROR [None]
  - OVERDOSE [None]
